FAERS Safety Report 10923767 (Version 3)
Quarter: 2015Q3

REPORT INFORMATION
  Report Type: Spontaneous
  Country: US (occurrence: US)
  Receive Date: 20150318
  Receipt Date: 20150714
  Transmission Date: 20151125
  Serious: Yes (Other)
  Sender: FDA-Public Use
  Company Number: US-ROCHE-1469838

PATIENT
  Sex: Female

DRUGS (1)
  1. XELODA [Suspect]
     Active Substance: CAPECITABINE
     Indication: NEOPLASM MALIGNANT
     Dosage: 14 DAYS ON 7 OFF
     Route: 048
     Dates: start: 20140902

REACTIONS (6)
  - Limb injury [Recovering/Resolving]
  - Temperature intolerance [Unknown]
  - Pain [Unknown]
  - Drug dose omission [Unknown]
  - Hypoaesthesia [Unknown]
  - Paraesthesia [Unknown]
